FAERS Safety Report 5476795-5 (Version None)
Quarter: 2007Q4

REPORT INFORMATION
  Report Type: 
  Country: None (occurrence: None)
  Receive Date: 20071003
  Receipt Date: 20071003
  Transmission Date: 20080405
  Serious: No
  Sender: FDA-Public Use
  Company Number: None

PATIENT
  Age: 43 Year
  Sex: Female
  Weight: 65.7716 kg

DRUGS (1)
  1. CYMBALTA [Suspect]
     Indication: ARRHYTHMIA
     Dosage: 100 MG DAILY PO
     Route: 048

REACTIONS (5)
  - CONDITION AGGRAVATED [None]
  - CRYING [None]
  - FEELING OF DESPAIR [None]
  - MALAISE [None]
  - SUICIDAL IDEATION [None]
